FAERS Safety Report 6025830-4 (Version None)
Quarter: 2009Q1

REPORT INFORMATION
  Report Type: 
  Country: None (occurrence: None)
  Receive Date: 20090102
  Receipt Date: 20081224
  Transmission Date: 20090719
  Serious: No
  Sender: FDA-Public Use
  Company Number: KR-JNJFOC-20081206390

PATIENT
  Age: 64 Year
  Sex: Male

DRUGS (2)
  1. DURAGESIC-100 [Suspect]
     Route: 062
  2. DURAGESIC-100 [Suspect]
     Indication: GASTRIC CANCER
     Route: 062

REACTIONS (2)
  - DRUG DOSE OMISSION [None]
  - DRUG INEFFECTIVE [None]
